FAERS Safety Report 12661159 (Version 2)
Quarter: 2016Q3

REPORT INFORMATION
  Report Type: Spontaneous
  Country: US (occurrence: US)
  Receive Date: 20160817
  Receipt Date: 20160901
  Transmission Date: 20161109
  Serious: No
  Sender: FDA-Public Use
  Company Number: US-RELYPSA-RLY2016000687

PATIENT
  Sex: Female

DRUGS (22)
  1. ATORVASTATIN CALCIUM. [Concomitant]
     Active Substance: ATORVASTATIN CALCIUM
  2. FENTANYL. [Concomitant]
     Active Substance: FENTANYL
  3. METOPROLOL SUCCINATE. [Concomitant]
     Active Substance: METOPROLOL SUCCINATE
  4. NOVOLOG [Concomitant]
     Active Substance: INSULIN ASPART
  5. PROMETHAZINE HCL [Concomitant]
     Active Substance: PROMETHAZINE HYDROCHLORIDE
  6. ASPIRIN                            /00002701/ [Concomitant]
     Active Substance: ASPIRIN
  7. PROAIR HFA [Concomitant]
     Active Substance: ALBUTEROL SULFATE
  8. VELTASSA [Suspect]
     Active Substance: PATIROMER
     Indication: HYPERKALAEMIA
     Dosage: 8.4 G, QD
     Route: 048
  9. LORATADINE. [Concomitant]
     Active Substance: LORATADINE
  10. SYNTHROID [Concomitant]
     Active Substance: LEVOTHYROXINE SODIUM
  11. ZOLPIDEM TARTRATE. [Concomitant]
     Active Substance: ZOLPIDEM TARTRATE
  12. ADVAIR HFA [Concomitant]
     Active Substance: FLUTICASONE PROPIONATE\SALMETEROL XINAFOATE
  13. ATROVENT HFA [Concomitant]
     Active Substance: IPRATROPIUM BROMIDE
  14. DIPHENHYDRAMINE HCL [Concomitant]
     Active Substance: DIPHENHYDRAMINE HYDROCHLORIDE
  15. DIVALPROEX SODIUM. [Concomitant]
     Active Substance: DIVALPROEX SODIUM
  16. OXYCODONE AND ACETAMINOPHEN [Concomitant]
     Active Substance: ACETAMINOPHEN\OXYCODONE HYDROCHLORIDE
  17. JARDIANCE [Concomitant]
     Active Substance: EMPAGLIFLOZIN
  18. ALPRAZOLAM. [Concomitant]
     Active Substance: ALPRAZOLAM
  19. ESCITALOPRAM OXALATE. [Concomitant]
     Active Substance: ESCITALOPRAM OXALATE
  20. LATANOPROST. [Concomitant]
     Active Substance: LATANOPROST
  21. VITAMIN D2 [Concomitant]
     Active Substance: ERGOCALCIFEROL
  22. CARISOPRODOL. [Concomitant]
     Active Substance: CARISOPRODOL

REACTIONS (1)
  - Dyspepsia [Not Recovered/Not Resolved]
